FAERS Safety Report 16346200 (Version 1)
Quarter: 2019Q2

REPORT INFORMATION
  Report Type: Spontaneous
  Country: ES (occurrence: ES)
  Receive Date: 20190523
  Receipt Date: 20190523
  Transmission Date: 20190711
  Serious: Yes (Hospitalization)
  Sender: FDA-Public Use
  Company Number: ES-AUROBINDO-AUR-APL-2019-028407

PATIENT

DRUGS (6)
  1. AMIODARONE [Suspect]
     Active Substance: AMIODARONE
     Indication: ATRIAL FIBRILLATION
     Dosage: 200 MILLIGRAM, ONCE A DAY
     Route: 048
     Dates: start: 201811, end: 20190123
  2. AMIODARONE HYDROCHLORIDE. [Concomitant]
     Active Substance: AMIODARONE HYDROCHLORIDE
     Dosage: 600 MILLIGRAM
     Route: 048
     Dates: start: 20190127, end: 20190130
  3. FUROSEMIDE. [Concomitant]
     Active Substance: FUROSEMIDE
     Indication: CARDIAC FAILURE CONGESTIVE
     Dosage: UNK
     Route: 065
     Dates: start: 20190124, end: 20190225
  4. AMIODARONE HYDROCHLORIDE. [Concomitant]
     Active Substance: AMIODARONE HYDROCHLORIDE
     Dosage: 200 UNK
     Route: 048
     Dates: start: 20190131, end: 20190221
  5. AMIODARONE HYDROCHLORIDE. [Concomitant]
     Active Substance: AMIODARONE HYDROCHLORIDE
     Indication: ARRHYTHMIA
     Route: 042
     Dates: start: 20190126, end: 20190127
  6. ACETYLSALICYLIC ACID [Concomitant]
     Active Substance: ASPIRIN
     Indication: PRODUCT USED FOR UNKNOWN INDICATION
     Dosage: 100 MILLIGRAM, ONCE A DAY
     Route: 048

REACTIONS (1)
  - Idiopathic pneumonia syndrome [Recovered/Resolved with Sequelae]

NARRATIVE: CASE EVENT DATE: 20190225
